FAERS Safety Report 7888898-6 (Version None)
Quarter: 2011Q4

REPORT INFORMATION
  Report Type: 
  Country: None (occurrence: None)
  Receive Date: 20111103
  Receipt Date: 20111024
  Transmission Date: 20120403
  Serious: Yes (Hospitalization, Other)
  Sender: FDA-Public Use
  Company Number: PR-BAYER-2011-081978

PATIENT
  Age: 27 Year
  Sex: Female
  Weight: 66 kg

DRUGS (3)
  1. YASMIN [Suspect]
     Dosage: UNK
     Dates: start: 20060801, end: 20070101
  2. PREVACID [Concomitant]
     Dosage: 20 MG, QD
  3. YAZ [Suspect]
     Dosage: UNK
     Dates: start: 20060801, end: 20070101

REACTIONS (7)
  - PAIN [None]
  - PANCREATITIS [None]
  - CHOLECYSTITIS CHRONIC [None]
  - MENTAL DISORDER [None]
  - GALLBLADDER INJURY [None]
  - INJURY [None]
  - CHOLELITHIASIS [None]
